FAERS Safety Report 6966322-5 (Version None)
Quarter: 2010Q3

REPORT INFORMATION
  Report Type: 
  Country: None (occurrence: None)
  Receive Date: 20100903
  Receipt Date: 20100823
  Transmission Date: 20110219
  Serious: Yes (Hospitalization, Other)
  Sender: FDA-Public Use
  Company Number: RU-GENENTECH-306024

PATIENT
  Age: 23 Year
  Sex: Female

DRUGS (3)
  1. RITUXIMAB [Suspect]
     Indication: RHEUMATOID ARTHRITIS
     Dosage: 1000 MG, Q2W
     Route: 042
     Dates: start: 20100329, end: 20100413
  2. METHOTREXATE [Concomitant]
     Indication: RHEUMATOID ARTHRITIS
     Dosage: 15 MG, 1/WEEK
     Route: 048
     Dates: start: 20090301
  3. MOVALIS [Concomitant]
     Indication: RHEUMATOID ARTHRITIS
     Dosage: 50 MG, 3/WEEK
     Route: 048

REACTIONS (10)
  - ANAEMIA [None]
  - AUTONOMIC NERVOUS SYSTEM IMBALANCE [None]
  - BLOOD GLUCOSE DECREASED [None]
  - CERVICITIS [None]
  - ENTEROCOLITIS INFECTIOUS [None]
  - GOITRE [None]
  - PREMATURE SEPARATION OF PLACENTA [None]
  - PROTEINURIA [None]
  - RETINOPATHY [None]
  - UTERINE HYPERTONUS [None]
